FAERS Safety Report 8816995 (Version 1)
Quarter: 2012Q4

REPORT INFORMATION
  Report Type: 
  Country: US (occurrence: None)
  Receive Date: 20121002
  Receipt Date: 20121002
  Transmission Date: 20130627
  Serious: Yes (Hospitalization)
  Sender: FDA-Public Use
  Company Number: None

PATIENT
  Sex: Female
  Weight: 44.9 kg

DRUGS (2)
  1. ETOPOSIDE [Suspect]
  2. IFOSFAMIDE [Suspect]
     Dosage: .13860 mg

REACTIONS (6)
  - Septic shock [None]
  - Haematocrit decreased [None]
  - Rectal haemorrhage [None]
  - Clostridium test positive [None]
  - Neutropenic colitis [None]
  - Caecitis [None]
